FAERS Safety Report 5968455-9 (Version None)
Quarter: 2008Q4

REPORT INFORMATION
  Report Type: 
  Country: None (occurrence: None)
  Receive Date: 20081121
  Receipt Date: 20081121
  Transmission Date: 20090506
  Serious: Yes (Hospitalization)
  Sender: FDA-Public Use
  Company Number: None

PATIENT
  Age: 54 Year
  Sex: Male
  Weight: 104.3273 kg

DRUGS (1)
  1. OSMOPREP [Suspect]
     Indication: COLONOSCOPY
     Dosage: 4 TABLETS EVERY 15 MINUTES
     Dates: start: 20081120, end: 20081120

REACTIONS (8)
  - BURNING SENSATION [None]
  - CONVULSION [None]
  - INCONTINENCE [None]
  - LOSS OF CONSCIOUSNESS [None]
  - PAIN [None]
  - PRURITUS GENERALISED [None]
  - RESPIRATORY DISORDER [None]
  - TREMOR [None]
